FAERS Safety Report 5450855-7 (Version None)
Quarter: 2007Q3

REPORT INFORMATION
  Report Type: 
  Country: None (occurrence: None)
  Receive Date: 20070913
  Receipt Date: 20070907
  Transmission Date: 20080115
  Serious: Yes (Other)
  Sender: FDA-Public Use
  Company Number: PHEH2007US12084

PATIENT
  Sex: Female

DRUGS (1)
  1. TEGRETOL-XR [Suspect]
     Dates: start: 20020101, end: 20040501

REACTIONS (4)
  - HEMIPLEGIA [None]
  - HYPERACUSIS [None]
  - HYPOTENSION [None]
  - OEDEMA [None]
